FAERS Safety Report 19064531 (Version 1)
Quarter: 2021Q1

REPORT INFORMATION
  Report Type: Spontaneous
  Country: BR (occurrence: BR)
  Receive Date: 20210326
  Receipt Date: 20210326
  Transmission Date: 20210420
  Serious: Yes (Death, Life-Threatening, Other)
  Sender: FDA-Public Use
  Company Number: BR-BAUSCH-BL-2020-005343

PATIENT
  Age: 9 Decade
  Sex: Male

DRUGS (2)
  1. CICLOPIROX OLAMINE. [Suspect]
     Active Substance: CICLOPIROX OLAMINE
     Indication: NAIL DISORDER
     Dosage: 2 DROPS ON THE NAIL IN THE MORNING AND 2 DROPS AT NIGHT
     Route: 065
     Dates: start: 201911
  2. CLONAZEPAM. [Concomitant]
     Active Substance: CLONAZEPAM
     Indication: SLEEP DISORDER

REACTIONS (3)
  - Death [Fatal]
  - Product use in unapproved indication [Unknown]
  - Therapeutic response unexpected [Unknown]

NARRATIVE: CASE EVENT DATE: 201911
